FAERS Safety Report 6536641-5 (Version None)
Quarter: 2010Q1

REPORT INFORMATION
  Report Type: 
  Country: None (occurrence: None)
  Receive Date: 20100113
  Receipt Date: 20100104
  Transmission Date: 20100710
  Serious: Yes (Death)
  Sender: FDA-Public Use
  Company Number: US-PFIZER INC-2010001145

PATIENT
  Age: 51 Year
  Sex: Female

DRUGS (10)
  1. DOXEPIN HCL [Suspect]
     Route: 065
  2. SILDENAFIL CITRATE [Suspect]
     Route: 065
  3. SERTRALINE HCL [Suspect]
     Route: 065
  4. OXYBUTYNIN [Suspect]
     Route: 065
  5. ESCITALOPRAM [Suspect]
     Route: 065
  6. ETHANOL [Suspect]
     Route: 065
  7. CLONAZEPAM [Suspect]
     Route: 065
  8. CLONIDINE [Suspect]
     Route: 065
  9. DIPHENHYDRAMINE [Suspect]
     Route: 065
  10. DULOXETINE [Suspect]
     Route: 065

REACTIONS (3)
  - CARDIAC ARREST [None]
  - DEATH [None]
  - RESPIRATORY ARREST [None]
